FAERS Safety Report 13984251 (Version 1)
Quarter: 2017Q3

REPORT INFORMATION
  Report Type: Report from Study
  Country: JP (occurrence: JP)
  Receive Date: 20170918
  Receipt Date: 20170918
  Transmission Date: 20171128
  Serious: Yes (Other)
  Sender: FDA-Public Use
  Company Number: JP-PFIZER INC-2017397284

PATIENT
  Age: 45 Year
  Sex: Male
  Weight: 76 kg

DRUGS (2)
  1. VFEND [Suspect]
     Active Substance: VORICONAZOLE
     Indication: PROPHYLAXIS
     Dosage: UNK
     Dates: start: 20170325, end: 20170416
  2. ICLUSIG [Interacting]
     Active Substance: PONATINIB
     Indication: CHRONIC MYELOID LEUKAEMIA
     Dosage: 15 MG, DAILY
     Route: 048
     Dates: start: 20170214

REACTIONS (3)
  - Hepatic function abnormal [Not Recovered/Not Resolved]
  - Drug interaction [Unknown]
  - Graft versus host disease in liver [Not Recovered/Not Resolved]

NARRATIVE: CASE EVENT DATE: 20170329
